FAERS Safety Report 16281189 (Version 2)
Quarter: 2019Q2

REPORT INFORMATION
  Report Type: Spontaneous
  Country: US (occurrence: US)
  Receive Date: 20190507
  Receipt Date: 20190628
  Transmission Date: 20190711
  Serious: Yes (Other)
  Sender: FDA-Public Use
  Company Number: US-UPSHER-SMITH LABORATORIES, LLC-2019USL00325

PATIENT
  Age: 48 Year
  Sex: Male

DRUGS (1)
  1. TESTOSTERONE. [Suspect]
     Active Substance: TESTOSTERONE
     Dosage: UNK
     Route: 065

REACTIONS (5)
  - Hepatic function abnormal [Recovered/Resolved]
  - Portal vein thrombosis [Unknown]
  - Cardiac failure acute [Recovered/Resolved]
  - Congestive cardiomyopathy [Recovering/Resolving]
  - Drug abuse [Recovered/Resolved]
